FAERS Safety Report 6331678-3 (Version None)
Quarter: 2009Q3

REPORT INFORMATION
  Report Type: 
  Country: None (occurrence: None)
  Receive Date: 20090827
  Receipt Date: 20090825
  Transmission Date: 20100115
  Serious: Yes (Death, Hospitalization)
  Sender: FDA-Public Use
  Company Number: PHHO2009TH09884

PATIENT
  Sex: Male
  Weight: 63.2 kg

DRUGS (2)
  1. RAD 666 RAD+TAB [Suspect]
     Indication: METASTATIC RENAL CELL CARCINOMA
     Dosage: 10 MG/DAY
     Route: 048
     Dates: start: 20090303, end: 20090703
  2. MORPHINE [Concomitant]
     Indication: PAIN
     Dosage: 3 MG, UNK
     Dates: start: 20090727, end: 20090802

REACTIONS (5)
  - ANAEMIA [None]
  - DRUG INEFFECTIVE [None]
  - HAEMATOCRIT DECREASED [None]
  - MALIGNANT NEOPLASM PROGRESSION [None]
  - TUMOUR HAEMORRHAGE [None]
